FAERS Safety Report 8567748-9 (Version None)
Quarter: 2012Q3

REPORT INFORMATION
  Report Type: 
  Country: None (occurrence: None)
  Receive Date: 20120803
  Receipt Date: 20120726
  Transmission Date: 20120928
  Serious: Yes (Disabling, Other)
  Sender: FDA-Public Use
  Company Number: FR-ASTRAZENECA-2012SE53158

PATIENT
  Age: 898 Month
  Sex: Male

DRUGS (9)
  1. SYMBICORT [Concomitant]
     Route: 055
  2. ASPIRIN [Concomitant]
  3. CRESTOR [Suspect]
     Indication: DYSLIPIDAEMIA
     Route: 048
     Dates: end: 20120625
  4. IKOREL [Concomitant]
  5. NITROGLYCERIN [Concomitant]
  6. EUPANTHOL [Concomitant]
  7. ACETAMINOPHEN [Concomitant]
  8. ISOPTIN [Concomitant]
  9. THEOPHYLLINE [Concomitant]

REACTIONS (2)
  - TENDONITIS [None]
  - TENDON RUPTURE [None]
